FAERS Safety Report 21516922 (Version 2)
Quarter: 2022Q4

REPORT INFORMATION
  Report Type: Report from Study
  Country: DE (occurrence: DE)
  Receive Date: 20221028
  Receipt Date: 20221114
  Transmission Date: 20230112
  Serious: Yes (Other)
  Sender: FDA-Public Use
  Company Number: DE-TAKEDA-2022TUS077609

PATIENT
  Age: 52 Year
  Sex: Female

DRUGS (13)
  1. PARATHYROID HORMONE [Suspect]
     Active Substance: PARATHYROID HORMONE
     Indication: Hypoparathyroidism
     Dosage: 100 MICROGRAM, QD
     Route: 065
     Dates: start: 20171108
  2. PARATHYROID HORMONE [Suspect]
     Active Substance: PARATHYROID HORMONE
     Indication: Hypoparathyroidism
     Dosage: 100 MICROGRAM, QD
     Route: 065
     Dates: start: 20171108
  3. PARATHYROID HORMONE [Suspect]
     Active Substance: PARATHYROID HORMONE
     Indication: Hypoparathyroidism
     Dosage: 100 MICROGRAM, QD
     Route: 065
     Dates: start: 20171108
  4. LEVOTHYROXINE SODIUM [Concomitant]
     Active Substance: LEVOTHYROXINE SODIUM
     Indication: Hypothyroidism
     Dosage: UNK
     Route: 048
     Dates: start: 20111201
  5. VITAMIN B12 [Concomitant]
     Active Substance: CYANOCOBALAMIN
     Indication: Vitamin B12 deficiency
     Dosage: UNK
     Route: 048
     Dates: start: 20190620
  6. LEVEMIR [Concomitant]
     Active Substance: INSULIN DETEMIR
     Indication: Diabetes mellitus
     Dosage: UNK
     Route: 058
     Dates: start: 2011
  7. RAMIPRIL [Concomitant]
     Active Substance: RAMIPRIL
     Indication: Hypertension
     Dosage: UNK
     Route: 048
     Dates: start: 1988, end: 201907
  8. METFORMIN [Concomitant]
     Active Substance: METFORMIN HYDROCHLORIDE
     Indication: Diabetes mellitus
     Dosage: UNK
     Route: 048
     Dates: start: 2006
  9. OZEMPIC [Concomitant]
     Active Substance: SEMAGLUTIDE
     Indication: Diabetes mellitus
     Dosage: UNK
     Route: 058
     Dates: start: 202101
  10. LORAZEPAM [Concomitant]
     Active Substance: LORAZEPAM
     Indication: Hypertensive crisis
     Dosage: UNK
     Route: 048
     Dates: start: 20210406, end: 20210406
  11. NITRENDIPINE [Concomitant]
     Active Substance: NITRENDIPINE
     Indication: Hypertensive crisis
     Dosage: UNK
     Route: 048
     Dates: start: 20210406, end: 20210406
  12. NITROGLYCERIN [Concomitant]
     Active Substance: NITROGLYCERIN
     Indication: Hypertensive crisis
     Dosage: UNK
     Route: 048
     Dates: start: 20210406, end: 20210406
  13. METAMIZOLE [Concomitant]
     Active Substance: METAMIZOLE
     Indication: Hypertensive crisis
     Dosage: UNK
     Route: 042
     Dates: start: 20210406, end: 20210406

REACTIONS (1)
  - Dupuytren^s contracture [Recovered/Resolved]

NARRATIVE: CASE EVENT DATE: 20210114
